FAERS Safety Report 25473087 (Version 1)
Quarter: 2025Q2

REPORT INFORMATION
  Report Type: Spontaneous
  Country: US (occurrence: None)
  Receive Date: 20250623
  Receipt Date: 20250623
  Transmission Date: 20250717
  Serious: Yes (Hospitalization)
  Sender: FDA-CTU
  Company Number: None

PATIENT
  Age: 46 Year
  Sex: Female

DRUGS (1)
  1. BROMELAIN\LECITHIN\RIBOFLAVIN [Suspect]
     Active Substance: BROMELAINS\LECITHIN\RIBOFLAVIN
     Indication: Weight decreased
     Dosage: WEEKLY INTRADERMAL
     Route: 023
     Dates: start: 20250616, end: 20250623

REACTIONS (6)
  - Product communication issue [None]
  - Product communication issue [None]
  - Burning sensation [None]
  - Asthenia [None]
  - Tremor [None]
  - Diarrhoea [None]

NARRATIVE: CASE EVENT DATE: 20250623
